FAERS Safety Report 9755538 (Version 1)
Quarter: 2013Q4

REPORT INFORMATION
  Report Type: Spontaneous
  Country: US (occurrence: US)
  Receive Date: 20131213
  Receipt Date: 20131213
  Transmission Date: 20140711
  Serious: No
  Sender: FDA-Public Use
  Company Number: US-GLAXOSMITHKLINE-A1019961A

PATIENT
  Age: 35 Year
  Sex: Male

DRUGS (1)
  1. EQUATE NTS 21MG [Suspect]
     Indication: TOBACCO ABUSE

REACTIONS (3)
  - Drug ineffective [Unknown]
  - Drug administration error [Unknown]
  - Product quality issue [Unknown]
